FAERS Safety Report 14239888 (Version 1)
Quarter: 2017Q4

REPORT INFORMATION
  Report Type: Spontaneous
  Country: US (occurrence: US)
  Receive Date: 20171128
  Receipt Date: 20171128
  Transmission Date: 20180321
  Serious: No
  Sender: FDA-Public Use
  Company Number: None

PATIENT
  Sex: Male
  Weight: 76.5 kg

DRUGS (10)
  1. LATUDA [Suspect]
     Active Substance: LURASIDONE HYDROCHLORIDE
     Indication: ANGER
  2. PERCOCET [Concomitant]
     Active Substance: ACETAMINOPHEN\OXYCODONE HYDROCHLORIDE
  3. LATUDA [Suspect]
     Active Substance: LURASIDONE HYDROCHLORIDE
     Indication: DEPRESSION
  4. ATOROVASTATIN [Concomitant]
  5. GABAPENTIN. [Concomitant]
     Active Substance: GABAPENTIN
  6. CENTRUM SILVER MULTI-VITAMIN [Concomitant]
  7. ATENOLOL. [Concomitant]
     Active Substance: ATENOLOL
  8. VITAMIN D3 [Concomitant]
     Active Substance: CHOLECALCIFEROL
  9. PROLIA [Concomitant]
     Active Substance: DENOSUMAB
  10. CALCIUM [Concomitant]
     Active Substance: CALCIUM

REACTIONS (1)
  - Tremor [None]

NARRATIVE: CASE EVENT DATE: 20160530
